FAERS Safety Report 18064376 (Version 1)
Quarter: 2020Q3

REPORT INFORMATION
  Report Type: Spontaneous
  Country: US (occurrence: US)
  Receive Date: 20200723
  Receipt Date: 20200723
  Transmission Date: 20201103
  Serious: No
  Sender: FDA-Public Use
  Company Number: None

PATIENT
  Age: 33 Year
  Sex: Male
  Weight: 75.15 kg

DRUGS (1)
  1. BLUMEN CLEAR ADVANCED HAND SANITIZER [Suspect]
     Active Substance: ALCOHOL
     Indication: INFECTION PROPHYLAXIS
     Dates: start: 20200428, end: 20200718

REACTIONS (10)
  - Product odour abnormal [None]
  - Drug ineffective [None]
  - Ligament sprain [None]
  - Product contamination [None]
  - Recalled product administered [None]
  - Renal pain [None]
  - Product physical consistency issue [None]
  - Loss of personal independence in daily activities [None]
  - Muscular weakness [None]
  - Neuralgia [None]

NARRATIVE: CASE EVENT DATE: 20200701
